FAERS Safety Report 8624013-9 (Version None)
Quarter: 2012Q3

REPORT INFORMATION
  Report Type: 
  Country: None (occurrence: None)
  Receive Date: 20120827
  Receipt Date: 20120820
  Transmission Date: 20120928
  Serious: Yes (Hospitalization, Other)
  Sender: FDA-Public Use
  Company Number: US-AMGEN-USASP2012041937

PATIENT
  Age: 12 Year
  Sex: Male

DRUGS (3)
  1. ENBREL [Suspect]
     Indication: TENDONITIS
  2. ENBREL [Suspect]
     Indication: JUVENILE ARTHRITIS
     Dosage: 25 MG, 2 TIMES/WK
     Route: 058
     Dates: start: 20040401
  3. NAPROXEN [Concomitant]
     Indication: JUVENILE ARTHRITIS
     Dosage: 500 MG, BID
     Dates: start: 20031201

REACTIONS (6)
  - FEELING ABNORMAL [None]
  - SLEEP DISORDER [None]
  - RHEUMATOID ARTHRITIS [None]
  - SLOW RESPONSE TO STIMULI [None]
  - NEUROPATHY PERIPHERAL [None]
  - CONVULSION [None]
